FAERS Safety Report 14404908 (Version 2)
Quarter: 2018Q2

REPORT INFORMATION
  Report Type: Report from Study
  Country: None (occurrence: US)
  Receive Date: 20180118
  Receipt Date: 20180406
  Transmission Date: 20180711
  Serious: Yes (Other)
  Sender: FDA-Public Use
  Company Number: US-ABBVIE-18K-163-2226417-00

PATIENT
  Sex: Female

DRUGS (2)
  1. HUMIRA [Suspect]
     Active Substance: ADALIMUMAB
     Indication: PSORIATIC ARTHROPATHY
  2. HUMIRA [Suspect]
     Active Substance: ADALIMUMAB
     Indication: PSORIASIS
     Route: 058

REACTIONS (8)
  - Depression suicidal [Not Recovered/Not Resolved]
  - Intervertebral disc protrusion [Not Recovered/Not Resolved]
  - Anxiety [Unknown]
  - Sensitivity to weather change [Not Recovered/Not Resolved]
  - Mobility decreased [Unknown]
  - Panic attack [Unknown]
  - Intervertebral disc degeneration [Not Recovered/Not Resolved]
  - Migraine [Recovered/Resolved with Sequelae]
